FAERS Safety Report 5097747-3 (Version None)
Quarter: 2006Q3

REPORT INFORMATION
  Report Type: 
  Country: None (occurrence: None)
  Receive Date: 20060905
  Receipt Date: 20060821
  Transmission Date: 20061208
  Serious: Yes (Hospitalization)
  Sender: FDA-Public Use
  Company Number: B0436020A

PATIENT
  Age: 62 Year
  Sex: Male

DRUGS (2)
  1. EPIVIR [Suspect]
     Indication: HEPATITIS B
     Dates: start: 20010501
  2. ADEFOVIR DIPIVOXIL [Concomitant]

REACTIONS (9)
  - ASCITES [None]
  - DRUG RESISTANCE [None]
  - FATIGUE [None]
  - HEPATIC ATROPHY [None]
  - HEPATIC ENCEPHALOPATHY [None]
  - HEPATIC FAILURE [None]
  - LIVER TRANSPLANT [None]
  - OEDEMA PERIPHERAL [None]
  - PORTAL HYPERTENSION [None]
